FAERS Safety Report 11147483 (Version 2)
Quarter: 2015Q2

REPORT INFORMATION
  Report Type: Spontaneous
  Country: US (occurrence: US)
  Receive Date: 20150529
  Receipt Date: 20150619
  Transmission Date: 20150821
  Serious: Yes (Death, Hospitalization)
  Sender: FDA-Public Use
  Company Number: US-009507513-1505USA014455

PATIENT
  Age: 70 Year
  Sex: Male

DRUGS (1)
  1. NOXAFIL [Suspect]
     Active Substance: POSACONAZOLE
     Indication: HISTOPLASMOSIS
     Dosage: UNK
     Dates: start: 20150115

REACTIONS (2)
  - Malignant neoplasm progression [Fatal]
  - Drug administration error [Unknown]

NARRATIVE: CASE EVENT DATE: 20150115
